FAERS Safety Report 15221074 (Version 4)
Quarter: 2018Q4

REPORT INFORMATION
  Report Type: Spontaneous
  Country: DE (occurrence: DE)
  Receive Date: 20180731
  Receipt Date: 20181015
  Transmission Date: 20190204
  Serious: Yes (Death)
  Sender: FDA-Public Use
  Company Number: DE-DRREDDYS-GER/GER/18/0102474

PATIENT
  Age: 35 Year
  Sex: Female
  Weight: 107 kg

DRUGS (2)
  1. LEVOTHYROXINE SODIUM. [Concomitant]
     Active Substance: LEVOTHYROXINE SODIUM
     Indication: HYPOTHYROIDISM
  2. LAMOTRIGIN ARISTO 25 MG [Suspect]
     Active Substance: LAMOTRIGINE
     Indication: EPILEPSY
     Dosage: EVERY 2 DAYS 25 MG
     Route: 048
     Dates: start: 20180510, end: 20180524

REACTIONS (6)
  - Sepsis [Fatal]
  - Cerebral haemorrhage [Fatal]
  - Pyrexia [Fatal]
  - Lymphadenopathy [Fatal]
  - Infection [Fatal]
  - Multiple organ dysfunction syndrome [Fatal]

NARRATIVE: CASE EVENT DATE: 20180522
